FAERS Safety Report 6476658-2 (Version None)
Quarter: 2009Q4

REPORT INFORMATION
  Report Type: 
  Country: None (occurrence: None)
  Receive Date: 20091204
  Receipt Date: 20091204
  Transmission Date: 20100525
  Serious: No
  Sender: FDA-Public Use
  Company Number: None

PATIENT
  Age: 57 Year
  Sex: Male
  Weight: 79.3795 kg

DRUGS (1)
  1. ZICAM NASAL SPRAY [Suspect]
     Dosage: I DOSE
     Route: 045

REACTIONS (1)
  - ANOSMIA [None]
